FAERS Safety Report 15588653 (Version 3)
Quarter: 2019Q1

REPORT INFORMATION
  Report Type: Report from Study
  Country: US (occurrence: US)
  Receive Date: 20181106
  Receipt Date: 20190202
  Transmission Date: 20190417
  Serious: Yes (Other)
  Sender: FDA-Public Use
  Company Number: PHEH2018US046085

PATIENT
  Age: 60 Year
  Sex: Female

DRUGS (1)
  1. GILENYA [Suspect]
     Active Substance: FINGOLIMOD HYDROCHLORIDE
     Indication: MULTIPLE SCLEROSIS
     Dosage: 0.5 MG, QD
     Route: 065
     Dates: start: 20181017, end: 20181207

REACTIONS (8)
  - Vision blurred [Not Recovered/Not Resolved]
  - Visual impairment [Unknown]
  - Joint injury [Unknown]
  - Eye pain [Not Recovered/Not Resolved]
  - Fall [Recovering/Resolving]
  - Decreased appetite [Not Recovered/Not Resolved]
  - Headache [Not Recovered/Not Resolved]
  - Eye inflammation [Unknown]

NARRATIVE: CASE EVENT DATE: 20181022
